FAERS Safety Report 7770845-9 (Version None)
Quarter: 2011Q3

REPORT INFORMATION
  Report Type: 
  Country: None (occurrence: None)
  Receive Date: 20110922
  Receipt Date: 20110419
  Transmission Date: 20111222
  Serious: No
  Sender: FDA-Public Use
  Company Number: US-ASTRAZENECA-2011SE22926

PATIENT
  Age: 42 Year
  Sex: Female
  Weight: 61.2 kg

DRUGS (4)
  1. SEROQUEL [Suspect]
     Indication: DEPRESSION
     Route: 048
     Dates: start: 20101101
  2. LYRICA [Concomitant]
     Indication: FIBROMYALGIA
  3. SEROQUEL [Suspect]
     Route: 048
     Dates: start: 20101101
  4. CELEBREX [Concomitant]
     Indication: FIBROMYALGIA

REACTIONS (1)
  - BRONCHITIS [None]
